FAERS Safety Report 8255383-1 (Version None)
Quarter: 2012Q1

REPORT INFORMATION
  Report Type: 
  Country: None (occurrence: None)
  Receive Date: 20120329
  Receipt Date: 20120307
  Transmission Date: 20120608
  Serious: Yes (Life-Threatening, Hospitalization)
  Sender: FDA-Public Use
  Company Number: JP-006141

PATIENT
  Age: 79 Year
  Sex: Male

DRUGS (13)
  1. DEGARELIX (DEGARELIX) INJECTION 240 MG, INJECTION 360 MG [Suspect]
     Indication: PROSTATE CANCER
     Dosage: 240 MG 1X SUBCUTANEOUS, 360 MG 1X/3 MONTHS SUBCUTANEOUS
     Route: 058
     Dates: start: 20110426, end: 20110719
  2. DEGARELIX (DEGARELIX) INJECTION 240 MG, INJECTION 360 MG [Suspect]
     Indication: PROSTATE CANCER
     Dosage: 240 MG 1X SUBCUTANEOUS, 360 MG 1X/3 MONTHS SUBCUTANEOUS
     Route: 058
     Dates: start: 20110329, end: 20110329
  3. FULRUBAN (FLURBIPROFEN) [Concomitant]
  4. SULTANOL (SALBUTAMOL SULFATE) [Concomitant]
  5. EPADEL [Concomitant]
  6. FELBINAC [Concomitant]
  7. SPIRIVA [Concomitant]
  8. CLOTIAZEPAM [Concomitant]
  9. DIOVAN [Concomitant]
  10. MAGNESIUM OXIDE [Concomitant]
  11. KETOPROFEN [Concomitant]
  12. HOKUNALIN [Concomitant]
  13. ATELEC (CILNIDIPINE) [Concomitant]

REACTIONS (23)
  - SUBARACHNOID HAEMORRHAGE [None]
  - DEEP VEIN THROMBOSIS [None]
  - FLUID RETENTION [None]
  - PYREXIA [None]
  - LOWER RESPIRATORY TRACT INFECTION [None]
  - SLOW RESPONSE TO STIMULI [None]
  - BLOOD PRESSURE INCREASED [None]
  - POST PROCEDURAL COMPLICATION [None]
  - HYDROCEPHALUS [None]
  - ROAD TRAFFIC ACCIDENT [None]
  - DEPRESSED LEVEL OF CONSCIOUSNESS [None]
  - ATELECTASIS [None]
  - THROMBOPHLEBITIS [None]
  - BRAIN HERNIATION [None]
  - SUBDURAL HAEMORRHAGE [None]
  - ENDOCARDITIS [None]
  - NEUROLOGICAL EXAMINATION ABNORMAL [None]
  - VOMITING [None]
  - TRAUMATIC HAEMORRHAGE [None]
  - BRAIN CONTUSION [None]
  - CEREBRAL HAEMORRHAGE [None]
  - EYE OEDEMA [None]
  - CEREBRAL HAEMATOMA [None]
